FAERS Safety Report 8036198-6 (Version None)
Quarter: 2012Q1

REPORT INFORMATION
  Report Type: 
  Country: None (occurrence: None)
  Receive Date: 20120111
  Receipt Date: 20120109
  Transmission Date: 20120608
  Serious: Yes (Death)
  Sender: FDA-Public Use
  Company Number: US-ELI_LILLY_AND_COMPANY-US201111001458

PATIENT
  Sex: Male
  Weight: 45.351 kg

DRUGS (4)
  1. ALIMTA [Suspect]
     Dosage: 800 MG, EVERY 3 WEEKS
     Dates: end: 20110420
  2. VITAMIN B-12 [Concomitant]
     Dosage: UNK, UNKNOWN
  3. ALIMTA [Suspect]
     Indication: LUNG NEOPLASM MALIGNANT
     Dosage: 900 MG, EVERY 21 DAYS
     Route: 042
     Dates: start: 20101110
  4. FOLIC ACID [Concomitant]
     Dosage: UNK, UNKNOWN

REACTIONS (3)
  - NEOPLASM MALIGNANT [None]
  - NEOPLASM PROGRESSION [None]
  - LUNG NEOPLASM MALIGNANT [None]
